FAERS Safety Report 4896132-4 (Version None)
Quarter: 2006Q1

REPORT INFORMATION
  Report Type: 
  Country: None (occurrence: None)
  Receive Date: 20060131
  Receipt Date: 20051111
  Transmission Date: 20060701
  Serious: Yes (Hospitalization, Other)
  Sender: FDA-Public Use
  Company Number: FR-RB-2312-2005

PATIENT
  Age: 37 Year
  Sex: Male
  Weight: 77 kg

DRUGS (4)
  1. BUPRENORPHINE HCL [Suspect]
     Indication: ELECTROLYTE SUBSTITUTION THERAPY
     Dosage: DOSAGE UNKNOWN
     Route: 060
  2. BUPRENORPHINE HCL [Suspect]
     Route: 060
  3. VALPROATE SODIUM [Concomitant]
     Indication: EPILEPSY
     Route: 048
  4. CLONAZEPAM [Concomitant]
     Indication: ANXIETY
     Route: 048

REACTIONS (3)
  - BORDERLINE PERSONALITY DISORDER [None]
  - DELUSION [None]
  - EPILEPSY [None]
